FAERS Safety Report 5736486-X (Version None)
Quarter: 2008Q2

REPORT INFORMATION
  Report Type: 
  Country: None (occurrence: None)
  Receive Date: 20080513
  Receipt Date: 20080507
  Transmission Date: 20081010
  Serious: Yes (Other)
  Sender: FDA-Public Use
  Company Number: US-JNJFOC-20080501591

PATIENT
  Sex: Female
  Weight: 58.06 kg

DRUGS (4)
  1. REMICADE [Suspect]
     Route: 042
  2. REMICADE [Suspect]
     Indication: CROHN'S DISEASE
     Route: 042
  3. SOMA WITH CODIENE [Concomitant]
     Indication: CYSTITIS INTERSTITIAL
  4. ADVOVIAL [Concomitant]
     Indication: MUSCLE RELAXANT THERAPY

REACTIONS (6)
  - GLOSSODYNIA [None]
  - LUNG NEOPLASM [None]
  - NAUSEA [None]
  - PHARYNGOLARYNGEAL PAIN [None]
  - RASH [None]
  - SINUSITIS [None]
